FAERS Safety Report 7458520-1 (Version None)
Quarter: 2011Q2

REPORT INFORMATION
  Report Type: 
  Country: None (occurrence: None)
  Receive Date: 20110504
  Receipt Date: 20110302
  Transmission Date: 20111010
  Serious: Yes (Other)
  Sender: FDA-Public Use
  Company Number: PHHY2011DK31733

PATIENT
  Sex: Female

DRUGS (1)
  1. ALNOK [Suspect]
     Indication: HYPERSENSITIVITY
     Dosage: 10 MG, UNK
     Route: 048
     Dates: start: 20101201, end: 20101201

REACTIONS (4)
  - CONFUSIONAL STATE [None]
  - PARAESTHESIA [None]
  - VISION BLURRED [None]
  - MACULOPATHY [None]
